FAERS Safety Report 23982727 (Version 1)
Quarter: 2024Q2

REPORT INFORMATION
  Report Type: Spontaneous
  Country: US (occurrence: None)
  Receive Date: 20240617
  Receipt Date: 20240617
  Transmission Date: 20240716
  Serious: Yes (Other)
  Sender: FDA-Public Use
  Company Number: None

PATIENT
  Age: 57 Year
  Sex: Female
  Weight: 60.75 kg

DRUGS (3)
  1. TIRZEPATIDE [Suspect]
     Active Substance: TIRZEPATIDE
     Indication: Diabetes mellitus
     Dosage: OTHER QUANTITY : 1 INJECTION;?OTHER FREQUENCY : 1 WEEKLY;?OTHER ROUTE : INJECTION INTO SUBCUSTANEUOU
     Route: 050
     Dates: start: 20240223, end: 20240229
  2. DEXCOM G7 [Concomitant]
  3. MARY RUTH^S VITAMINS/MINERALS [Concomitant]

REACTIONS (7)
  - Wrong product administered [None]
  - Product label confusion [None]
  - Rash erythematous [None]
  - Pain [None]
  - Pruritus [None]
  - Swelling [None]
  - Product dispensing error [None]

NARRATIVE: CASE EVENT DATE: 20240223
